FAERS Safety Report 13428176 (Version 2)
Quarter: 2017Q2

REPORT INFORMATION
  Report Type: Spontaneous
  Country: CH (occurrence: CH)
  Receive Date: 20170411
  Receipt Date: 20170417
  Transmission Date: 20170830
  Serious: Yes (Hospitalization, Other)
  Sender: FDA-Public Use
  Company Number: CH-PFIZER INC-2017150689

PATIENT
  Age: 16 Year
  Sex: Female
  Weight: 36 kg

DRUGS (4)
  1. MYCOBUTIN [Suspect]
     Active Substance: RIFABUTIN
     Indication: HELICOBACTER GASTRITIS
     Dosage: 150MG (1-0-1)
     Dates: start: 20161118, end: 20161122
  2. ESOMEPRAZOL ASTRAZENECA [Suspect]
     Active Substance: ESOMEPRAZOLE MAGNESIUM
     Dosage: 40MG (1-0-1)
     Dates: start: 20161118, end: 20161125
  3. AMOXICILLIN SANDOZ [Suspect]
     Active Substance: AMOXICILLIN
     Indication: HELICOBACTER GASTRITIS
     Dosage: 100MG (1-0-1)
     Dates: start: 20161118, end: 20161122
  4. TAVANIC [Suspect]
     Active Substance: LEVOFLOXACIN
     Indication: HELICOBACTER GASTRITIS
     Dosage: 500MG (1-0-1)
     Dates: start: 20161118, end: 20161122

REACTIONS (7)
  - Leukopenia [Recovering/Resolving]
  - Pancytopenia [Recovering/Resolving]
  - Tremor [Unknown]
  - Feeling cold [Unknown]
  - Neutrophil count decreased [Recovering/Resolving]
  - Pyrexia [Recovered/Resolved]
  - Thrombocytopenia [Recovering/Resolving]

NARRATIVE: CASE EVENT DATE: 20161122
